FAERS Safety Report 7675453-6 (Version None)
Quarter: 2011Q3

REPORT INFORMATION
  Report Type: 
  Country: None (occurrence: None)
  Receive Date: 20110810
  Receipt Date: 20110805
  Transmission Date: 20111222
  Serious: Yes (Hospitalization, Other)
  Sender: FDA-Public Use
  Company Number: US-SANOFI-AVENTIS-2011SA050498

PATIENT
  Age: 47 Year
  Sex: Male

DRUGS (6)
  1. WARFARIN SODIUM [Suspect]
     Route: 065
     Dates: start: 20080101, end: 20081101
  2. ASPIRIN [Suspect]
     Route: 065
  3. COUMADIN [Suspect]
     Route: 065
     Dates: start: 20070101, end: 20080101
  4. WARFARIN SODIUM [Suspect]
     Route: 065
     Dates: start: 20080101
  5. COUMADIN [Suspect]
     Route: 065
     Dates: start: 20110201
  6. PLAVIX [Suspect]
     Route: 048

REACTIONS (12)
  - CHOLECYSTECTOMY [None]
  - POST PROCEDURAL COMPLICATION [None]
  - CHEST PAIN [None]
  - LARGE INTESTINAL HAEMORRHAGE [None]
  - CEREBROVASCULAR ACCIDENT [None]
  - CORONARY ARTERY OCCLUSION [None]
  - HAEMATURIA [None]
  - INTERNATIONAL NORMALISED RATIO INCREASED [None]
  - HEMIPARESIS [None]
  - RECTAL HAEMORRHAGE [None]
  - TRANSIENT ISCHAEMIC ATTACK [None]
  - MYOCARDIAL INFARCTION [None]
